FAERS Safety Report 4500255-9 (Version None)
Quarter: 2004Q4

REPORT INFORMATION
  Report Type: 
  Country: None (occurrence: None)
  Receive Date: 20041109
  Receipt Date: 20041022
  Transmission Date: 20050328
  Serious: Yes (Death)
  Sender: FDA-Public Use
  Company Number: 2004241890US

PATIENT
  Age: 38 Year
  Sex: Male

DRUGS (1)
  1. CELEBREX [Suspect]

REACTIONS (3)
  - BRAIN NEOPLASM [None]
  - GLIOMA [None]
  - MYOCARDIAL INFARCTION [None]
